FAERS Safety Report 10529521 (Version 19)
Quarter: 2016Q2

REPORT INFORMATION
  Report Type: Report from Study
  Country: CA (occurrence: CA)
  Receive Date: 20141021
  Receipt Date: 20160621
  Transmission Date: 20160815
  Serious: Yes (Life-Threatening, Hospitalization, Other)
  Sender: FDA-Public Use
  Company Number: CA-ROCHE-1248423

PATIENT
  Age: 49 Year
  Sex: Female
  Weight: 95 kg

DRUGS (17)
  1. BENADRYL [Suspect]
     Active Substance: DIPHENHYDRAMINE HYDROCHLORIDE
     Route: 065
  2. TRAMADOL HYDROCHLORIDE. [Concomitant]
     Active Substance: TRAMADOL HYDROCHLORIDE
  3. FOLIC ACID. [Concomitant]
     Active Substance: FOLIC ACID
  4. ASA [Concomitant]
     Active Substance: ASPIRIN
  5. ACTEMRA [Suspect]
     Active Substance: TOCILIZUMAB
     Indication: RHEUMATOID ARTHRITIS
     Route: 042
     Dates: start: 20130710
  6. PRESERVISION AREDS [Concomitant]
     Active Substance: MINERALS\VITAMINS
  7. ACTEMRA [Suspect]
     Active Substance: TOCILIZUMAB
     Route: 042
     Dates: start: 20151216, end: 20160531
  8. SYSTANE ULTRA [Concomitant]
     Active Substance: POLYETHYLENE GLYCOL 400\PROPYLENE GLYCOL
  9. METHOTREXATE [Concomitant]
     Active Substance: METHOTREXATE
  10. ULTRAM [Concomitant]
     Active Substance: TRAMADOL HYDROCHLORIDE
  11. ATORVASTATIN [Concomitant]
     Active Substance: ATORVASTATIN
  12. ACTEMRA [Suspect]
     Active Substance: TOCILIZUMAB
     Route: 042
     Dates: start: 20130905
  13. BENADRYL [Suspect]
     Active Substance: DIPHENHYDRAMINE HYDROCHLORIDE
     Indication: PREMEDICATION
     Route: 048
     Dates: start: 20140911, end: 20150226
  14. ALLOPURINOL. [Concomitant]
     Active Substance: ALLOPURINOL
  15. VOLTAREN [Concomitant]
     Active Substance: DICLOFENAC SODIUM
  16. PREDNISONE. [Concomitant]
     Active Substance: PREDNISONE
  17. VALSARTAN HCT [Concomitant]
     Active Substance: HYDROCHLOROTHIAZIDE\VALSARTAN

REACTIONS (37)
  - Cellulitis [Unknown]
  - Pharyngitis [Not Recovered/Not Resolved]
  - Urinary tract infection [Recovering/Resolving]
  - Eye infection [Unknown]
  - Rash pruritic [Not Recovered/Not Resolved]
  - Cellulitis [Not Recovered/Not Resolved]
  - Pain [Not Recovered/Not Resolved]
  - Infection [Not Recovered/Not Resolved]
  - Ligament sprain [Unknown]
  - Kidney infection [Unknown]
  - Arthropod sting [Recovered/Resolved]
  - Gingivitis [Unknown]
  - Weight increased [Unknown]
  - Weight decreased [Unknown]
  - Headache [Unknown]
  - Facial pain [Recovering/Resolving]
  - Drug ineffective [Unknown]
  - Drug effect incomplete [Unknown]
  - Acne [Unknown]
  - Urinary tract infection [Recovered/Resolved]
  - Nausea [Not Recovered/Not Resolved]
  - Localised infection [Recovering/Resolving]
  - Nasopharyngitis [Recovering/Resolving]
  - Somnolence [Unknown]
  - Gastritis [Recovering/Resolving]
  - Urinary tract infection [Not Recovered/Not Resolved]
  - Skin infection [Unknown]
  - Arthropathy [Not Recovered/Not Resolved]
  - Sepsis [Not Recovered/Not Resolved]
  - Blood pressure increased [Not Recovered/Not Resolved]
  - Fatigue [Unknown]
  - Nasal congestion [Not Recovered/Not Resolved]
  - Oral infection [Not Recovered/Not Resolved]
  - Infusion related reaction [Recovered/Resolved]
  - Fatigue [Unknown]
  - Arthralgia [Not Recovered/Not Resolved]
  - Blood pressure increased [Unknown]

NARRATIVE: CASE EVENT DATE: 20130710
